FAERS Safety Report 14345913 (Version 1)
Quarter: 2018Q1

REPORT INFORMATION
  Report Type: Spontaneous
  Country: BR (occurrence: BR)
  Receive Date: 20180103
  Receipt Date: 20180103
  Transmission Date: 20180509
  Serious: Yes (Other)
  Sender: FDA-Public Use
  Company Number: BR-AMGEN-BRASP2017191488

PATIENT
  Age: 62 Year
  Sex: Female

DRUGS (11)
  1. BENICAR ANLO [Concomitant]
     Active Substance: AMLODIPINE BESYLATE\OLMESARTAN MEDOXOMIL
     Indication: HYPERTENSION
     Dosage: 40 MG+5 MG, QD
  2. PREDNISONE. [Concomitant]
     Active Substance: PREDNISONE
     Indication: ARTHRITIS
     Dosage: 5 MG, UNK
  3. FOLIC ACID. [Concomitant]
     Active Substance: FOLIC ACID
     Indication: GRANULOMATOSIS WITH POLYANGIITIS
     Dosage: 5 MG, UNK
  4. BROMAZEPAN [Concomitant]
     Active Substance: BROMAZEPAM
     Indication: HYPERTENSION
     Dosage: 3 MG, AS NECESSARY
  5. METHOTREXATE. [Concomitant]
     Active Substance: METHOTREXATE
     Indication: GRANULOMATOSIS WITH POLYANGIITIS
     Dosage: 20 MG, QWK (ON WEDNESDAYS)
  6. PROPRANOLOL [Concomitant]
     Active Substance: PROPRANOLOL HYDROCHLORIDE
     Indication: HYPERTENSION
     Dosage: UNK, BID
  7. VITAMIN D [Concomitant]
     Active Substance: CHOLECALCIFEROL
     Indication: OSTEOPOROSIS
  8. PROLIA [Suspect]
     Active Substance: DENOSUMAB
     Indication: OSTEOPOROSIS
     Dosage: 60 MG, Q2WK
     Route: 058
     Dates: start: 20170714
  9. PROLIA [Suspect]
     Active Substance: DENOSUMAB
     Indication: OSTEOPENIA
  10. PREDNISONE. [Concomitant]
     Active Substance: PREDNISONE
     Dosage: 10 MG, UNK
  11. REUQUINOL [Concomitant]
     Active Substance: HYDROXYCHLOROQUINE SULFATE
     Indication: GRANULOMATOSIS WITH POLYANGIITIS
     Dosage: 400 MG, UNK

REACTIONS (9)
  - Head injury [Recovered/Resolved]
  - Sinusitis [Not Recovered/Not Resolved]
  - Mastication disorder [Unknown]
  - Pallor [Recovered/Resolved]
  - Tooth fracture [Unknown]
  - Fall [Recovered/Resolved]
  - Balance disorder [Recovered/Resolved]
  - Arthritis [Not Recovered/Not Resolved]
  - Blood growth hormone decreased [Unknown]

NARRATIVE: CASE EVENT DATE: 2017
